FAERS Safety Report 19162874 (Version 1)
Quarter: 2021Q2

REPORT INFORMATION
  Report Type: Spontaneous
  Country: US (occurrence: US)
  Receive Date: 20210421
  Receipt Date: 20210421
  Transmission Date: 20210717
  Serious: No
  Sender: FDA-Public Use
  Company Number: US-SA-2021SA126495

PATIENT
  Sex: Female

DRUGS (12)
  1. VIVELLE?DOT [Concomitant]
     Active Substance: ESTRADIOL
  2. PREDNISOLONE. [Concomitant]
     Active Substance: PREDNISOLONE
  3. ALLEGRA [Concomitant]
     Active Substance: FEXOFENADINE HYDROCHLORIDE
  4. OXYBUTYNIN CHLORIDE. [Concomitant]
     Active Substance: OXYBUTYNIN CHLORIDE
  5. SYNTHROID [Concomitant]
     Active Substance: LEVOTHYROXINE SODIUM
  6. AUBAGIO [Suspect]
     Active Substance: TERIFLUNOMIDE
     Indication: MULTIPLE SCLEROSIS
  7. VIMPAT [Concomitant]
     Active Substance: LACOSAMIDE
  8. LYRICA [Concomitant]
     Active Substance: PREGABALIN
  9. MODAFINIL. [Concomitant]
     Active Substance: MODAFINIL
  10. PREDNISONE. [Concomitant]
     Active Substance: PREDNISONE
  11. TIZANIDINE HCL [Concomitant]
     Active Substance: TIZANIDINE HYDROCHLORIDE
  12. CBD OIL [Concomitant]
     Active Substance: CANNABIDIOL\HERBALS

REACTIONS (2)
  - Renal disorder [Unknown]
  - Functional gastrointestinal disorder [Unknown]
